FAERS Safety Report 6819027-5 (Version None)
Quarter: 2010Q3

REPORT INFORMATION
  Report Type: 
  Country: None (occurrence: None)
  Receive Date: 20100707
  Receipt Date: 20100625
  Transmission Date: 20110219
  Serious: Yes (Hospitalization)
  Sender: FDA-Public Use
  Company Number: JP-JNJFOC-20100608549

PATIENT
  Sex: Female

DRUGS (6)
  1. REMICADE [Suspect]
     Indication: RHEUMATOID ARTHRITIS
     Dosage: 22 INFUSIONS
     Route: 042
  2. REMICADE [Suspect]
     Route: 042
  3. RHEUMATREX [Suspect]
     Indication: RHEUMATOID ARTHRITIS
     Route: 048
  4. FOLIAMIN [Concomitant]
     Route: 048
  5. CYTOTEC [Concomitant]
     Dosage: DOSE 600 RG
     Route: 048
  6. LOXONIN [Concomitant]
     Route: 048

REACTIONS (1)
  - LYMPHOMA [None]
